FAERS Safety Report 25351346 (Version 3)
Quarter: 2025Q4

REPORT INFORMATION
  Report Type: Spontaneous
  Country: US (occurrence: US)
  Receive Date: 20250523
  Receipt Date: 20251027
  Transmission Date: 20260118
  Serious: No
  Sender: SUNOVION
  Company Number: US-SMPA-2025SPA005271AA

PATIENT
  Age: 67 Year
  Sex: Male

DRUGS (2)
  1. ORGOVYX [Suspect]
     Active Substance: RELUGOLIX
     Indication: Prostate cancer
     Dosage: 360 MG, SINGLE
     Route: 048
  2. ORGOVYX [Suspect]
     Active Substance: RELUGOLIX
     Dosage: 120 MG, QD
     Route: 048
     Dates: start: 20250405

REACTIONS (8)
  - Testicular atrophy [Unknown]
  - Hypoaesthesia [Unknown]
  - Sleep disorder [Unknown]
  - Erectile dysfunction [Unknown]
  - Loss of libido [Unknown]
  - Arthralgia [Unknown]
  - Headache [Unknown]
  - Product dose omission in error [Recovered/Resolved]
